FAERS Safety Report 21872004 (Version 1)
Quarter: 2023Q1

REPORT INFORMATION
  Report Type: Spontaneous
  Country: US (occurrence: US)
  Receive Date: 20230117
  Receipt Date: 20230117
  Transmission Date: 20230417
  Serious: Yes (Hospitalization)
  Sender: FDA-Public Use
  Company Number: US-SCILEX PHARMACEUTICALS INC.-2023SCX00002

PATIENT
  Age: 1 Day
  Sex: Female
  Weight: 3.115 kg

DRUGS (1)
  1. LIDOCAINE [Suspect]
     Active Substance: LIDOCAINE
     Dosage: (MATERNAL DOSE OF 15 ML)
     Route: 064

REACTIONS (1)
  - Neonatal toxicity [Recovered/Resolved]
